FAERS Safety Report 7273525-1 (Version None)
Quarter: 2010Q4

REPORT INFORMATION
  Report Type: 
  Country: None (occurrence: None)
  Receive Date: 20101130
  Receipt Date: 20100218
  Transmission Date: 20110411
  Serious: Yes (Hospitalization, Other)
  Sender: FDA-Public Use
  Company Number: 2010SP010757

PATIENT
  Age: 22 Year
  Sex: Female
  Weight: 117.9352 kg

DRUGS (2)
  1. NUVARING [Suspect]
     Indication: CONTRACEPTION
     Dates: start: 20090223, end: 20090401
  2. ADVIL LIQUI-GELS [Concomitant]

REACTIONS (3)
  - DEEP VEIN THROMBOSIS [None]
  - HAEMATURIA [None]
  - PULMONARY EMBOLISM [None]
